FAERS Safety Report 19030848 (Version 2)
Quarter: 2021Q2

REPORT INFORMATION
  Report Type: Report from Study
  Country: NL (occurrence: NL)
  Receive Date: 20210319
  Receipt Date: 20210430
  Transmission Date: 20210717
  Serious: Yes (Other)
  Sender: FDA-Public Use
  Company Number: NVSC2021NL060346

PATIENT
  Sex: Female

DRUGS (2)
  1. INC280 [Suspect]
     Active Substance: CAPMATINIB
     Dosage: UNK FROM 04 SEP TO 09 SEP (YEAR UNSPECIFIED)
     Route: 065
  2. INC280 [Suspect]
     Active Substance: CAPMATINIB
     Indication: PRODUCT USED FOR UNKNOWN INDICATION
     Dosage: UNK FROM 31 AUG (YEAR UNSPECIFIED)
     Route: 065

REACTIONS (2)
  - General physical health deterioration [Unknown]
  - Disease progression [Not Recovered/Not Resolved]
